FAERS Safety Report 8469195-7 (Version None)
Quarter: 2012Q2

REPORT INFORMATION
  Report Type: 
  Country: None (occurrence: None)
  Receive Date: 20120626
  Receipt Date: 20110524
  Transmission Date: 20120825
  Serious: Yes (Disabling)
  Sender: FDA-Public Use
  Company Number: US-MUTUAL PHARMACEUTICAL COMPANY, INC.-MTCA20110922

PATIENT
  Sex: 0

DRUGS (6)
  1. METOCLOPRAMIDE [Suspect]
     Indication: IMPAIRED GASTRIC EMPTYING
  2. METOCLOPRAMIDE [Suspect]
     Indication: ABDOMINAL DISTENSION
     Route: 048
  3. REGLAN [Suspect]
     Indication: DYSPEPSIA
  4. METOCLOPRAMIDE [Suspect]
     Indication: DYSPEPSIA
  5. REGLAN [Suspect]
     Indication: ABDOMINAL DISTENSION
     Route: 048
  6. REGLAN [Suspect]
     Indication: IMPAIRED GASTRIC EMPTYING

REACTIONS (2)
  - EXTRAPYRAMIDAL DISORDER [None]
  - TARDIVE DYSKINESIA [None]
